FAERS Safety Report 6198943-4 (Version None)
Quarter: 2009Q2

REPORT INFORMATION
  Report Type: 
  Country: None (occurrence: None)
  Receive Date: 20090522
  Receipt Date: 20090512
  Transmission Date: 20091009
  Serious: Yes (Other)
  Sender: FDA-Public Use
  Company Number: CA-JNJFOC-20090502483

PATIENT
  Sex: Male

DRUGS (12)
  1. PREZISTA [Suspect]
     Indication: HIV INFECTION
     Route: 048
  2. REYATAZ [Suspect]
     Indication: HIV INFECTION
     Route: 065
  3. SUSTIVA [Suspect]
     Indication: HIV INFECTION
     Route: 066
  4. AGENERASE [Suspect]
     Indication: HIV INFECTION
     Route: 065
  5. CRIXIVAN [Suspect]
     Indication: HIV INFECTION
     Route: 065
  6. EMTRIVA [Suspect]
     Indication: HIV INFECTION
     Route: 065
  7. TRUVADA [Suspect]
     Indication: HIV INFECTION
     Route: 065
  8. TENOFOVIR [Suspect]
     Indication: HIV INFECTION
     Route: 065
  9. ZERIT [Suspect]
     Indication: HIV INFECTION
  10. ABACAVIR SULFATE [Suspect]
     Indication: HIV INFECTION
     Route: 065
  11. RESCRIPTOR [Suspect]
     Indication: HIV INFECTION
     Route: 065
  12. ATRIPLA [Suspect]
     Indication: HIV INFECTION
     Route: 065

REACTIONS (5)
  - ABDOMINAL PAIN [None]
  - FATIGUE [None]
  - HALLUCINATION [None]
  - INSOMNIA [None]
  - RASH [None]
